FAERS Safety Report 21298428 (Version 1)
Quarter: 2022Q3

REPORT INFORMATION
  Report Type: Spontaneous
  Country: CA (occurrence: CA)
  Receive Date: 20220906
  Receipt Date: 20220906
  Transmission Date: 20221026
  Serious: Yes (Other)
  Sender: FDA-Public Use
  Company Number: CA-PFIZER INC-202201114332

PATIENT
  Age: 36 Year
  Sex: Female

DRUGS (24)
  1. METHOTREXATE SODIUM [Suspect]
     Active Substance: METHOTREXATE SODIUM
     Dosage: 2.5 MG (10 TABLETS), ONCE WEEKLY
     Route: 048
     Dates: end: 20060209
  2. METHOTREXATE SODIUM [Suspect]
     Active Substance: METHOTREXATE SODIUM
     Dosage: 2.5 MG WEEKLY
     Route: 048
     Dates: start: 20061129
  3. REMICADE [Concomitant]
     Active Substance: INFLIXIMAB
     Dosage: UNK
     Dates: start: 20061210
  4. REMICADE [Concomitant]
     Active Substance: INFLIXIMAB
     Dosage: 200 MG EVERY 5 WEEKS
     Dates: start: 200807, end: 20080715
  5. ORENCIA [Concomitant]
     Active Substance: ABATACEPT
     Dosage: 500 MG EVERY 4 WEEKS
     Route: 042
     Dates: start: 20080813, end: 20090625
  6. RITUXAN [Concomitant]
     Active Substance: RITUXIMAB
     Dosage: 1000 MG
     Dates: start: 20090909, end: 201702
  7. ACTEMRA [Concomitant]
     Active Substance: TOCILIZUMAB
     Dosage: 3 DOSES (LOE)
     Route: 058
     Dates: start: 201707, end: 201708
  8. RINVOQ [Concomitant]
     Active Substance: UPADACITINIB
     Dosage: UNK
     Dates: start: 20200304
  9. RINVOQ [Concomitant]
     Active Substance: UPADACITINIB
     Dosage: 15 MG, 1X/DAY
  10. VITAMIN B6 [Concomitant]
     Active Substance: PYRIDOXINE HYDROCHLORIDE
     Dosage: 1 TABLET ONCE DAILY
  11. VITAMINS NOS [Concomitant]
     Active Substance: VITAMINS
     Dosage: 1 TABLET ONCE DAILY
     Route: 048
  12. OMEGA 3 FISH OIL [FISH OIL] [Concomitant]
     Dosage: 2 TABLET ONCE DAILY
  13. CIPRALEX [Concomitant]
     Active Substance: ESCITALOPRAM OXALATE
     Dosage: 10 MG, 1X/DAY (AS NEEDED)
  14. BETADERM [Concomitant]
     Active Substance: BETAMETHASONE VALERATE
     Dosage: 0.1 % 1 APPLICATION (AS NEEDED)
  15. ANUSOL HC [Concomitant]
     Active Substance: HYDROCORTISONE
     Dosage: 0.5 %, 1X/DAY, 1 APPLICATION (AS NEEDED)
  16. PROBIOTICS NOS [Concomitant]
     Active Substance: PROBIOTICS NOS
     Dosage: 1 TABLET, 1X/DAY
  17. IBUPROFEN [Concomitant]
     Active Substance: IBUPROFEN
     Dosage: 400 MG (1.5 TABLET), 3 TIMES A DAY (AS NEEDED)
  18. TYLENOL [Concomitant]
     Active Substance: ACETAMINOPHEN
     Indication: Headache
     Dosage: 500 MG (2 TABLET) 3 TIMES A DAY (AS NEEDED)
  19. COENZYME Q10 [Concomitant]
     Active Substance: DIETARY SUPPLEMENT\UBIDECARENONE
     Dosage: 1 TABLET, 1X/DAY
  20. PENNSAID [Concomitant]
     Active Substance: DICLOFENAC SODIUM
     Dosage: 1.5 %, (DROPS) 1X/DAY (1 APPLICATION) (AS NEEDED)
  21. VENLAFAXINE [Concomitant]
     Active Substance: VENLAFAXINE HYDROCHLORIDE
     Dosage: 37.5 MG (1 CAPSULE), 1X/DAY
  22. FOLIC ACID [Concomitant]
     Active Substance: FOLIC ACID
     Dosage: 5 MG (1 TABLET) 6 TIMES WEEKLY (WEEKS EXCEPT THE DAY OF MTX)
     Route: 048
  23. VIT D [VITAMIN D NOS] [Concomitant]
     Dosage: 1000 IU (1 TABLET)
  24. CALCIUM [Concomitant]
     Active Substance: CALCIUM
     Dosage: 500 MG, 1X/DAY (AS NEEDED (PRN) FOR 100 DAYS)
     Route: 048

REACTIONS (17)
  - Breast mass [Unknown]
  - Blood thyroid stimulating hormone increased [Unknown]
  - Alanine aminotransferase increased [Unknown]
  - Vitamin D decreased [Unknown]
  - Arthralgia [Unknown]
  - Swelling [Unknown]
  - Musculoskeletal stiffness [Unknown]
  - Tremor [Unknown]
  - Vertigo [Unknown]
  - Dizziness [Unknown]
  - Tuberculin test positive [Unknown]
  - Benign breast neoplasm [Unknown]
  - Eczema [Unknown]
  - Arthralgia [Unknown]
  - Joint swelling [Unknown]
  - Blood bilirubin increased [Unknown]
  - Red blood cell sedimentation rate increased [Unknown]

NARRATIVE: CASE EVENT DATE: 20110301
